FAERS Safety Report 6413286-9 (Version None)
Quarter: 2009Q4

REPORT INFORMATION
  Report Type: 
  Country: None (occurrence: None)
  Receive Date: 20091026
  Receipt Date: 20091021
  Transmission Date: 20100525
  Serious: Yes (Hospitalization)
  Sender: FDA-Public Use
  Company Number: JP-BAYER-200913668BYL

PATIENT
  Age: 59 Year
  Sex: Male
  Weight: 63 kg

DRUGS (2)
  1. NEXAVAR [Suspect]
     Indication: RENAL CELL CARCINOMA STAGE IV
     Dosage: TOTAL DAILY DOSE: 800 MG  UNIT DOSE: 200 MG
     Route: 048
     Dates: start: 20090908, end: 20090916
  2. AZUNOL GARGLE LIQUID [Concomitant]
     Indication: PROPHYLAXIS
     Route: 048
     Dates: start: 20090907, end: 20091003

REACTIONS (2)
  - PALMAR-PLANTAR ERYTHRODYSAESTHESIA SYNDROME [None]
  - STEVENS-JOHNSON SYNDROME [None]
